FAERS Safety Report 13377269 (Version 2)
Quarter: 2017Q2

REPORT INFORMATION
  Report Type: Report from Study
  Country: US (occurrence: US)
  Receive Date: 20170328
  Receipt Date: 20170525
  Transmission Date: 20170830
  Serious: Yes (Death, Hospitalization, Other)
  Sender: FDA-Public Use
  Company Number: US-009507513-1703USA005874

PATIENT
  Age: 77 Year
  Sex: Female

DRUGS (7)
  1. SYNTHROID [Concomitant]
     Active Substance: LEVOTHYROXINE SODIUM
     Dosage: 112 MCG DAILY
     Dates: start: 201610
  2. POSACONAZOLE [Concomitant]
     Active Substance: POSACONAZOLE
     Dosage: 300 G DAILY
     Route: 048
     Dates: start: 201610
  3. ELTROMBOPAG OLAMINE [Concomitant]
     Active Substance: ELTROMBOPAG OLAMINE
     Dosage: 150 G DAILY
     Dates: start: 201610
  4. NOXAFIL [Suspect]
     Active Substance: POSACONAZOLE
     Indication: PROPHYLAXIS
     Dosage: UNK
     Route: 048
     Dates: start: 201610, end: 20170308
  5. POTASSIUM (UNSPECIFIED) [Concomitant]
     Active Substance: POTASSIUM
     Dosage: 20 MG, DAILY
     Dates: start: 201611
  6. PEPCID [Concomitant]
     Active Substance: FAMOTIDINE
     Dosage: 20 G, BID
     Dates: start: 201611
  7. ACYCLOVIR. [Concomitant]
     Active Substance: ACYCLOVIR
     Dosage: 400 G, BID
     Dates: start: 201610

REACTIONS (5)
  - Diverticulitis [Fatal]
  - Dehydration [Unknown]
  - Asthenia [Unknown]
  - Febrile neutropenia [Unknown]
  - Aplastic anaemia [Fatal]

NARRATIVE: CASE EVENT DATE: 20170223
